FAERS Safety Report 6396506-9 (Version None)
Quarter: 2009Q4

REPORT INFORMATION
  Report Type: 
  Country: None (occurrence: None)
  Receive Date: 20091012
  Receipt Date: 20091001
  Transmission Date: 20100525
  Serious: Yes (Hospitalization, Other)
  Sender: FDA-Public Use
  Company Number: US-AMGEN-QUU366000

PATIENT
  Sex: Male

DRUGS (7)
  1. ENBREL [Suspect]
     Indication: PSORIATIC ARTHROPATHY
     Dates: start: 20061201, end: 20090901
  2. ENBREL [Suspect]
     Indication: PSORIASIS
  3. MELOXICAM [Concomitant]
  4. TRICOR [Concomitant]
  5. PRAVACHOL [Concomitant]
  6. MOBIC [Concomitant]
     Route: 058
     Dates: start: 20061201, end: 20090901
  7. HUMIRA [Concomitant]

REACTIONS (2)
  - BLADDER NEOPLASM [None]
  - BLADDER TRANSITIONAL CELL CARCINOMA [None]
